FAERS Safety Report 4616945-3 (Version None)
Quarter: 2005Q1

REPORT INFORMATION
  Report Type: 
  Country: None (occurrence: None)
  Receive Date: 20050321
  Receipt Date: 20050308
  Transmission Date: 20050727
  Serious: Yes (Hospitalization, Other)
  Sender: FDA-Public Use
  Company Number: 2004114443

PATIENT
  Sex: Female
  Weight: 66.5 kg

DRUGS (5)
  1. DILANTIN KAPSEAL [Suspect]
     Indication: CONVULSION
     Dosage: 300 MG (300 MG , 1 IN 1 D), ORAL
     Route: 048
     Dates: end: 20041222
  2. CLOBAZAM                  (CLOBAZAM) [Concomitant]
  3. VALPROATE SODIUM [Concomitant]
  4. VITAMINS            (VITAMINS) [Concomitant]
  5. CALCIUM             (CALCIUM) [Concomitant]

REACTIONS (16)
  - ASTHMA [None]
  - BLOOD CHOLESTEROL INCREASED [None]
  - CEREBRAL DISORDER [None]
  - DRUG INEFFECTIVE [None]
  - FULL BLOOD COUNT ABNORMAL [None]
  - HEPATIC ENZYME INCREASED [None]
  - HEPATIC MASS [None]
  - HEPATOSPLENOMEGALY [None]
  - INGUINAL HERNIA [None]
  - LYMPHOMA [None]
  - OSTEOPENIA [None]
  - OVARIAN CYST [None]
  - PSEUDO LYMPHOMA [None]
  - SOMNOLENCE [None]
  - UTERINE LEIOMYOMA [None]
  - WEIGHT INCREASED [None]
